FAERS Safety Report 6602928-0 (Version None)
Quarter: 2010Q1

REPORT INFORMATION
  Report Type: 
  Country: None (occurrence: None)
  Receive Date: 20100226
  Receipt Date: 20100218
  Transmission Date: 20100710
  Serious: Yes (Other)
  Sender: FDA-Public Use
  Company Number: US-TYCO HEALTHCARE/MALLINCKRODT-T201000653

PATIENT
  Age: 12 Year

DRUGS (1)
  1. SODIUM IODIDE I 131 [Suspect]
     Indication: HYPERTHYROIDISM
     Dosage: UNK

REACTIONS (1)
  - HYPOTHYROIDISM [None]
